FAERS Safety Report 17265328 (Version 5)
Quarter: 2022Q4

REPORT INFORMATION
  Report Type: Spontaneous
  Country: CA (occurrence: None)
  Receive Date: 20200114
  Receipt Date: 20221121
  Transmission Date: 20230112
  Serious: Yes (Other)
  Sender: FDA-Public Use
  Company Number: CA-ROCHE-2515630

PATIENT
  Sex: Male

DRUGS (24)
  1. ACTEMRA [Suspect]
     Active Substance: TOCILIZUMAB
     Indication: Product used for unknown indication
     Route: 065
  2. ARAVA [Suspect]
     Active Substance: LEFLUNOMIDE
     Indication: Product used for unknown indication
     Route: 065
  3. AZATHIOPRINE [Suspect]
     Active Substance: AZATHIOPRINE
     Indication: Product used for unknown indication
     Route: 065
  4. ENBREL [Suspect]
     Active Substance: ETANERCEPT
     Indication: Rheumatoid arthritis
     Route: 058
  5. GOLD [Suspect]
     Active Substance: GOLD
     Indication: Product used for unknown indication
     Route: 065
  6. HYDROXYCHLOROQUINE SULFATE [Suspect]
     Active Substance: HYDROXYCHLOROQUINE SULFATE
     Indication: Product used for unknown indication
     Route: 065
  7. HYDROXYCHLOROQUINE SULFATE [Suspect]
     Active Substance: HYDROXYCHLOROQUINE SULFATE
     Route: 065
  8. HYDROXYCHLOROQUINE SULFATE [Suspect]
     Active Substance: HYDROXYCHLOROQUINE SULFATE
     Route: 065
  9. HYDROXYCHLOROQUINE SULFATE [Suspect]
     Active Substance: HYDROXYCHLOROQUINE SULFATE
     Route: 065
  10. HYDROXYCHLOROQUINE SULFATE [Suspect]
     Active Substance: HYDROXYCHLOROQUINE SULFATE
     Route: 065
  11. IMURAN [Suspect]
     Active Substance: AZATHIOPRINE
     Indication: Product used for unknown indication
     Route: 065
  12. LEFLUNOMIDE [Suspect]
     Active Substance: LEFLUNOMIDE
     Indication: Product used for unknown indication
     Route: 048
  13. LEFLUNOMIDE [Suspect]
     Active Substance: LEFLUNOMIDE
     Route: 048
  14. LEFLUNOMIDE [Suspect]
     Active Substance: LEFLUNOMIDE
     Route: 048
  15. METHOTREXATE [Suspect]
     Active Substance: METHOTREXATE
     Indication: Rheumatoid arthritis
     Route: 058
  16. METHOTREXATE [Suspect]
     Active Substance: METHOTREXATE
     Dosage: SOLUTION FOR INJECTION
     Route: 058
  17. METHOTREXATE [Suspect]
     Active Substance: METHOTREXATE
     Dosage: SOLUTION FOR INJECTION
     Route: 058
  18. METHOTREXATE [Suspect]
     Active Substance: METHOTREXATE
     Route: 065
  19. ORENCIA [Suspect]
     Active Substance: ABATACEPT
     Indication: Product used for unknown indication
     Route: 065
  20. PLAQUENIL [Suspect]
     Active Substance: HYDROXYCHLOROQUINE SULFATE
     Indication: Product used for unknown indication
     Dosage: DURATION: 365.0
     Route: 065
  21. GOLD SODIUM THIOMALATE [Suspect]
     Active Substance: GOLD SODIUM THIOMALATE
     Indication: Product used for unknown indication
     Route: 065
  22. SULFASALAZINE [Suspect]
     Active Substance: SULFASALAZINE
     Indication: Product used for unknown indication
     Route: 065
  23. ASPIRIN [Concomitant]
     Active Substance: ASPIRIN
     Indication: Myocardial infarction
     Route: 065
  24. TIAPROFENIC ACID [Concomitant]
     Active Substance: TIAPROFENIC ACID
     Indication: Product used for unknown indication
     Route: 065

REACTIONS (15)
  - Back pain [Recovered/Resolved]
  - Drug ineffective [Unknown]
  - Gait inability [Recovered/Resolved]
  - Hand deformity [Recovered/Resolved]
  - Insomnia [Recovered/Resolved]
  - Limb discomfort [Recovered/Resolved]
  - Liver disorder [Recovered/Resolved]
  - Localised infection [Recovered/Resolved]
  - Musculoskeletal discomfort [Recovered/Resolved]
  - Pain in extremity [Recovered/Resolved]
  - Rheumatoid arthritis [Recovered/Resolved]
  - Therapeutic product effect decreased [Recovered/Resolved]
  - Arthropathy [Recovered/Resolved]
  - Contraindicated product administered [Unknown]
  - Off label use [Unknown]
